FAERS Safety Report 16533471 (Version 1)
Quarter: 2019Q3

REPORT INFORMATION
  Report Type: Spontaneous
  Country: US (occurrence: US)
  Receive Date: 20190703
  Receipt Date: 20190703
  Transmission Date: 20191004
  Serious: Yes (Hospitalization, Other)
  Sender: FDA-Public Use
  Company Number: None

PATIENT
  Sex: Female

DRUGS (4)
  1. NITROFURANTIN [Concomitant]
     Active Substance: NITROFURANTOIN
  2. AZITHROMYCIN ANHYDROUS. [Concomitant]
     Active Substance: AZITHROMYCIN ANHYDROUS
  3. ONDANSETRON [Concomitant]
     Active Substance: ONDANSETRON
  4. IBRANCE [Suspect]
     Active Substance: PALBOCICLIB
     Indication: BREAST CANCER FEMALE
     Route: 048
     Dates: start: 20190126

REACTIONS (6)
  - Renal failure [None]
  - Vomiting [None]
  - Urinary tract infection [None]
  - Pyrexia [None]
  - Cognitive disorder [None]
  - Diarrhoea [None]
